FAERS Safety Report 12585492 (Version 1)
Quarter: 2016Q3

REPORT INFORMATION
  Report Type: Spontaneous
  Country: US (occurrence: US)
  Receive Date: 20160724
  Receipt Date: 20160724
  Transmission Date: 20161109
  Serious: Yes (Other)
  Sender: FDA-Public Use
  Company Number: US-ELI_LILLY_AND_COMPANY-US201607005223

PATIENT
  Sex: Female

DRUGS (2)
  1. HUMULIN N [Suspect]
     Active Substance: INSULIN HUMAN
     Indication: TYPE 2 DIABETES MELLITUS
     Dosage: UNK UNK, UNKNOWN
     Route: 065
     Dates: start: 201507
  2. HUMULIN N [Suspect]
     Active Substance: INSULIN HUMAN
     Dosage: UNK UNK, UNKNOWN
     Route: 065

REACTIONS (11)
  - Feeling hot [Unknown]
  - Nausea [Unknown]
  - Feeling abnormal [Unknown]
  - Generalised erythema [Unknown]
  - Throat tightness [Unknown]
  - Blood glucose decreased [Unknown]
  - Pruritus [Unknown]
  - Rash [Unknown]
  - Bronchospasm [Unknown]
  - Blood glucose increased [Unknown]
  - Asthma [Unknown]
